FAERS Safety Report 9281209 (Version 2)
Quarter: 2013Q2

REPORT INFORMATION
  Report Type: Spontaneous
  Country: US (occurrence: US)
  Receive Date: 20130509
  Receipt Date: 20130611
  Transmission Date: 20140414
  Serious: Yes (Hospitalization)
  Sender: FDA-Public Use
  Company Number: US-BAYER-2013-056410

PATIENT
  Age: 18 Year
  Sex: Female
  Weight: 55.3 kg

DRUGS (3)
  1. BEYAZ [Suspect]
  2. CEFDINIR [Concomitant]
     Dosage: 30 MG, UNK
  3. ADVIL COLD AND SINUS [Concomitant]
     Indication: NASOPHARYNGITIS
     Dosage: UNK
     Dates: start: 20110920

REACTIONS (1)
  - Pulmonary embolism [Recovering/Resolving]
